FAERS Safety Report 6644190-9 (Version None)
Quarter: 2010Q1

REPORT INFORMATION
  Report Type: 
  Country: None (occurrence: None)
  Receive Date: 20100322
  Receipt Date: 20100311
  Transmission Date: 20100710
  Serious: Yes (Life-Threatening)
  Sender: FDA-Public Use
  Company Number: DE-CUBIST-2010S1000139

PATIENT
  Age: 49 Year
  Sex: Male
  Weight: 75 kg

DRUGS (2)
  1. CUBICIN [Suspect]
     Indication: DRUG USE FOR UNKNOWN INDICATION
     Route: 042
     Dates: start: 20100306
  2. CUBICIN [Suspect]
     Route: 042
     Dates: start: 20100306

REACTIONS (1)
  - CARDIAC TAMPONADE [None]
